FAERS Safety Report 20584379 (Version 1)
Quarter: 2022Q1

REPORT INFORMATION
  Report Type: Spontaneous
  Country: None (occurrence: CA)
  Receive Date: 20220311
  Receipt Date: 20220311
  Transmission Date: 20220424
  Serious: Yes (Hospitalization, Other)
  Sender: FDA-Public Use
  Company Number: CA-B.Braun Medical Inc.-2126691

PATIENT
  Age: 71 Year
  Sex: Female

DRUGS (44)
  1. ACETAMINOPHEN [Suspect]
     Active Substance: ACETAMINOPHEN
  2. MAGNESIUM SULFATE [Suspect]
     Active Substance: MAGNESIUM SULFATE
  3. METRONIDAZOLE [Suspect]
     Active Substance: METRONIDAZOLE
  4. SODIUM CHLORIDE [Suspect]
     Active Substance: SODIUM CHLORIDE
  5. AMOXICILLIN TRIHYDRATE [Suspect]
     Active Substance: AMOXICILLIN
  6. ATORVASTATIN CALCIUM [Suspect]
     Active Substance: ATORVASTATIN CALCIUM
  7. FLUTICASONE FUROATE [Suspect]
     Active Substance: FLUTICASONE FUROATE
  8. BACTRIM [Suspect]
     Active Substance: SULFAMETHOXAZOLE\TRIMETHOPRIM
  9. CALCIUM CARBONATE [Suspect]
     Active Substance: CALCIUM CARBONATE
  10. CETIRIZINE HYDROCHLORIDE [Suspect]
     Active Substance: CETIRIZINE HYDROCHLORIDE
  11. CHOLECALCIFEROL [Suspect]
     Active Substance: CHOLECALCIFEROL
  12. CLARITHROMYCIN [Suspect]
     Active Substance: CLARITHROMYCIN
  13. CLOTRIMAZOLE [Suspect]
     Active Substance: CLOTRIMAZOLE
  14. CUPRIC OXIDE [Suspect]
     Active Substance: CUPRIC OXIDE
  15. .ALPHA.-TOCOPHEROL, D- [Suspect]
     Active Substance: .ALPHA.-TOCOPHEROL, D-
  16. DESONIDE [Suspect]
     Active Substance: DESONIDE
  17. DILAUDID [Suspect]
     Active Substance: HYDROMORPHONE HYDROCHLORIDE
  18. DIPHENHYDRAMINE HYDROCHLORIDE [Suspect]
     Active Substance: DIPHENHYDRAMINE HYDROCHLORIDE
  19. ENTOCORT [Suspect]
     Active Substance: BUDESONIDE
  20. ERTAPENEM SODIUM [Suspect]
     Active Substance: ERTAPENEM SODIUM
  21. FLOVENT [Suspect]
     Active Substance: FLUTICASONE PROPIONATE
  22. GLYCERIN [Suspect]
     Active Substance: GLYCERIN
  23. GRAMICIDIN\NEOMYCIN SULFATE\POLYMYXIN B SULFATE [Suspect]
     Active Substance: GRAMICIDIN\NEOMYCIN SULFATE\POLYMYXIN B SULFATE
  24. HUMIRA [Suspect]
     Active Substance: ADALIMUMAB
  25. HYDROMORPHONE HYDROCHLORIDE [Suspect]
     Active Substance: HYDROMORPHONE HYDROCHLORIDE
  26. INFLIXIMAB [Suspect]
     Active Substance: INFLIXIMAB
  27. ISONIAZID\PYRIDOXINE\SULFAMETHOXAZOLE\TRIMETHOPRIM [Suspect]
     Active Substance: ISONIAZID\PYRIDOXINE\SULFAMETHOXAZOLE\TRIMETHOPRIM
  28. LOMOTIL [Suspect]
     Active Substance: ATROPINE SULFATE\DIPHENOXYLATE HYDROCHLORIDE
  29. POLYETHYLENE GLYCOL\POTASSIUM CHLORIDE\SODIUM BICARBONATE [Suspect]
     Active Substance: POLYETHYLENE GLYCOL\POTASSIUM CHLORIDE\SODIUM BICARBONATE
  30. MUPIROCIN [Suspect]
     Active Substance: MUPIROCIN
  31. NADOLOL [Suspect]
     Active Substance: NADOLOL
  32. NICODERM CQ [Suspect]
     Active Substance: NICOTINE
  33. NICOTINE [Suspect]
     Active Substance: NICOTINE
  34. PANTOPRAZOLE [Suspect]
     Active Substance: PANTOPRAZOLE
  35. PENTASA [Suspect]
     Active Substance: MESALAMINE
  36. AZITHROMYCIN ANHYDROUS [Suspect]
     Active Substance: AZITHROMYCIN ANHYDROUS
  37. PREDNISONE [Suspect]
     Active Substance: PREDNISONE
  38. PREGABALIN [Suspect]
     Active Substance: PREGABALIN
  39. PULMICORT TURBUHALER [Suspect]
     Active Substance: BUDESONIDE
  40. REFRESH TEARS [Suspect]
     Active Substance: CARBOXYMETHYLCELLULOSE SODIUM
  41. TRIAMCINOLONE ACETONIDE [Suspect]
     Active Substance: TRIAMCINOLONE ACETONIDE
  42. CALCIUM CARBONATE WITH VITAMIN D (CHOLECALCIFEROL) [Concomitant]
     Active Substance: CALCIUM CARBONATE\CHOLECALCIFEROL
  43. LOPERAMIDE [Concomitant]
     Active Substance: LOPERAMIDE
  44. METOCLOPRAMIDE HYDROCHLORIDE [Concomitant]
     Active Substance: METOCLOPRAMIDE HYDROCHLORIDE

REACTIONS (14)
  - Chronic sinusitis [Not Recovered/Not Resolved]
  - Drug ineffective [None]
  - Dyspepsia [None]
  - Infusion related reaction [None]
  - Macular degeneration [None]
  - Malaise [None]
  - Nausea [None]
  - Off label use [None]
  - Pain [None]
  - Paraesthesia oral [None]
  - Procedural pain [None]
  - Pyrexia [None]
  - Therapeutic product effect incomplete [None]
  - Weight decreased [None]
